FAERS Safety Report 21738081 (Version 1)
Quarter: 2022Q4

REPORT INFORMATION
  Report Type: Report from Study
  Country: US (occurrence: US)
  Receive Date: 20221216
  Receipt Date: 20221216
  Transmission Date: 20230113
  Serious: No
  Sender: FDA-Public Use
  Company Number: US-ABBVIE-4188364

PATIENT
  Age: 64 Year
  Sex: Female

DRUGS (1)
  1. RINVOQ [Suspect]
     Active Substance: UPADACITINIB
     Indication: Rheumatoid arthritis
     Route: 048

REACTIONS (6)
  - Fall [Recovering/Resolving]
  - Wrist fracture [Unknown]
  - Upper limb fracture [Unknown]
  - Muscle injury [Unknown]
  - Contusion [Unknown]
  - Muscle rupture [Unknown]

NARRATIVE: CASE EVENT DATE: 20221002
